FAERS Safety Report 10269589 (Version 1)
Quarter: 2014Q2

REPORT INFORMATION
  Report Type: Spontaneous
  Country: US (occurrence: None)
  Receive Date: 20140625
  Receipt Date: 20140625
  Transmission Date: 20141212
  Serious: Yes (Other)
  Sender: FDA-Public Use
  Company Number: UNT-2014-002409

PATIENT
  Age: 69 Year
  Sex: Male
  Weight: 74.8 kg

DRUGS (1)
  1. REMODULIN (TREPROSTINIL SODIUM) INJECTION, 2.5MG/ML [Suspect]
     Indication: COR PULMONALE CHRONIC
     Dosage: CONTINUING
     Route: 058
     Dates: start: 20140430

REACTIONS (1)
  - Hypoacusis [None]
